FAERS Safety Report 7434516-0 (Version None)
Quarter: 2011Q2

REPORT INFORMATION
  Report Type: 
  Country: None (occurrence: None)
  Receive Date: 20110425
  Receipt Date: 20110420
  Transmission Date: 20111010
  Serious: Yes (Other)
  Sender: FDA-Public Use
  Company Number: BR-AMGEN-BRASP2010004312

PATIENT
  Age: 45 Year
  Sex: Female
  Weight: 48 kg

DRUGS (3)
  1. ENBREL [Suspect]
     Indication: RHEUMATOID ARTHRITIS
     Dosage: 50 MG, ONCE WEEKLY
     Route: 058
     Dates: start: 20100801, end: 20101101
  2. BIOFENAC                           /00372303/ [Concomitant]
     Dosage: 500 MG, 1X/DAY
  3. PREDNISONE [Concomitant]
     Dosage: 5 MG, 1X/DAY

REACTIONS (2)
  - ARTHROPOD BITE [None]
  - HERPES ZOSTER [None]
